FAERS Safety Report 24384395 (Version 1)
Quarter: 2024Q4

REPORT INFORMATION
  Report Type: Spontaneous
  Country: CN (occurrence: CN)
  Receive Date: 20241001
  Receipt Date: 20241001
  Transmission Date: 20250115
  Serious: Yes (Other)
  Sender: ROCHE
  Company Number: CN-ROCHE-10000093476

PATIENT
  Age: 22 Year
  Sex: Female

DRUGS (8)
  1. MABTHERA [Suspect]
     Active Substance: RITUXIMAB
     Indication: Neuromyelitis optica spectrum disorder
     Dosage: 100+ 500 MG
     Route: 042
  2. MABTHERA [Suspect]
     Active Substance: RITUXIMAB
     Dosage: SECOND DOSE(100+500 MG), THIRD DOSE (00+500 MG) ON 02/NOV/2023
     Route: 042
     Dates: start: 202304
  3. MABTHERA [Suspect]
     Active Substance: RITUXIMAB
     Dosage: THIRD DOSE (100+500 MG) ON 02/NOV/2023
     Route: 042
     Dates: start: 202304
  4. ROCEPHIN [Suspect]
     Active Substance: CEFTRIAXONE SODIUM
     Indication: Upper respiratory tract infection
     Route: 065
  5. SATRALIZUMAB [Concomitant]
     Active Substance: SATRALIZUMAB
     Indication: Neuromyelitis optica spectrum disorder
     Route: 065
     Dates: start: 20240206
  6. SATRALIZUMAB [Concomitant]
     Active Substance: SATRALIZUMAB
     Dosage: THE PATIENT RECEIVED THE SECOND AND THIRD INJECTIONS OF SATRALIZUMAB 2 WEEKS AFTER THE FIRST INJECTI
     Route: 058
     Dates: start: 20240222
  7. PREDNISONE ACETATE [Concomitant]
     Active Substance: PREDNISONE ACETATE
  8. METHYLPREDNISOLONE [Concomitant]
     Active Substance: METHYLPREDNISOLONE

REACTIONS (12)
  - Neuromyelitis optica spectrum disorder [Unknown]
  - Off label use [Unknown]
  - Nasopharyngitis [Unknown]
  - Pollakiuria [Unknown]
  - Micturition urgency [Unknown]
  - Constipation [Unknown]
  - Decreased appetite [Unknown]
  - Poor quality sleep [Unknown]
  - Weight decreased [Unknown]
  - Upper respiratory tract infection [Unknown]
  - Weight increased [Unknown]
  - Lipoprotein abnormal [Unknown]
